FAERS Safety Report 5028340-6 (Version None)
Quarter: 2006Q2

REPORT INFORMATION
  Report Type: 
  Country: None (occurrence: None)
  Receive Date: 20060503
  Receipt Date: 20060215
  Transmission Date: 20061013
  Serious: No
  Sender: FDA-Public Use
  Company Number: FACT0600083

PATIENT
  Age: 54 Year
  Sex: Female

DRUGS (1)
  1. FACTIVE [Suspect]
     Indication: RESPIRATORY TRACT INFECTION BACTERIAL
     Dosage: 320 MG, QD, ORAL
     Route: 048

REACTIONS (1)
  - RASH MACULO-PAPULAR [None]
